FAERS Safety Report 16843838 (Version 1)
Quarter: 2019Q4

REPORT INFORMATION
  Report Type: Spontaneous
  Country: US (occurrence: US)
  Receive Date: 20190923
  Receipt Date: 20190923
  Transmission Date: 20200122
  Serious: Yes (Other)
  Sender: FDA-Public Use
  Company Number: None

PATIENT
  Age: 31 Year
  Sex: Male
  Weight: 99 kg

DRUGS (1)
  1. FERAHEME [Suspect]
     Active Substance: FERUMOXYTOL NON-STOICHIOMETRIC MAGNETITE
     Indication: IRON DEFICIENCY ANAEMIA
     Dosage: ?          OTHER FREQUENCY:30 IV INFUSION;?
     Route: 041

REACTIONS (5)
  - Oxygen saturation decreased [None]
  - Pain [None]
  - Chest pain [None]
  - Malaise [None]
  - Back pain [None]

NARRATIVE: CASE EVENT DATE: 20190916
